FAERS Safety Report 9931432 (Version 2)
Quarter: 2014Q2

REPORT INFORMATION
  Report Type: Spontaneous
  Country: US (occurrence: US)
  Receive Date: 20140228
  Receipt Date: 20140617
  Transmission Date: 20141212
  Serious: No
  Sender: FDA-Public Use
  Company Number: US-009507513-1402USA013375

PATIENT
  Age: 27 Year
  Sex: Female
  Weight: 79.82 kg

DRUGS (2)
  1. NEXPLANON [Suspect]
     Dosage: 1 ROD/3 YEARS, LEFT ARM
     Route: 059
     Dates: start: 20140220, end: 20140220
  2. NEXPLANON [Suspect]
     Dosage: LEFT ARM
     Route: 059
     Dates: start: 20140220

REACTIONS (3)
  - Device difficult to use [Recovered/Resolved]
  - Product quality issue [Unknown]
  - No adverse event [Unknown]
